FAERS Safety Report 16388759 (Version 1)
Quarter: 2019Q2

REPORT INFORMATION
  Report Type: Spontaneous
  Country: JP (occurrence: JP)
  Receive Date: 20190604
  Receipt Date: 20190604
  Transmission Date: 20190711
  Serious: Yes (Other)
  Sender: FDA-Public Use
  Company Number: JP-PFIZER INC-2019119125

PATIENT
  Age: 65 Year
  Sex: Male
  Weight: 45 kg

DRUGS (23)
  1. EXFORGE [Concomitant]
     Active Substance: AMLODIPINE BESYLATE\VALSARTAN
     Dosage: 1 DF, UNK
  2. FLUITRAN [Concomitant]
     Active Substance: TRICHLORMETHIAZIDE
     Dosage: 0.5 MG (0.5 TABLETS), UNK
  3. SOLDEM 3A [Concomitant]
     Active Substance: CARBOHYDRATES\POTASSIUM CHLORIDE\SODIUM CHLORIDE\SODIUM LACTATE
     Dosage: UNK
     Route: 041
     Dates: start: 20190314, end: 20190314
  4. HYALEIN [Concomitant]
     Active Substance: HYALURONATE SODIUM
     Dosage: (BOTH EYES)
     Route: 047
  5. COSOPT [Concomitant]
     Active Substance: DORZOLAMIDE HYDROCHLORIDE\TIMOLOL MALEATE
     Dosage: UNK UNK, 2X/DAY (RIGHT EYE)
     Route: 047
  6. VFEND [Suspect]
     Active Substance: VORICONAZOLE
     Indication: SPONDYLITIS
     Dosage: 300 MG, 2X/DAY (LOADING DOSE)
     Route: 048
     Dates: start: 20190315, end: 20190315
  7. TRAMCET [Concomitant]
     Active Substance: ACETAMINOPHEN\TRAMADOL
     Dosage: 1 DF, 3X/DAY (30MINS AFTER MEALS)
     Dates: start: 20190322, end: 20190404
  8. CEFAMEZIN [CEFAZOLIN SODIUM] [Concomitant]
     Dosage: UNK
     Route: 041
     Dates: start: 20190314, end: 20190314
  9. VFEND [Suspect]
     Active Substance: VORICONAZOLE
     Indication: BRONCHOPULMONARY ASPERGILLOSIS
     Dosage: 200 MG, 2X/DAY
     Route: 048
     Dates: start: 20190316, end: 20190318
  10. TRAMCET [Concomitant]
     Active Substance: ACETAMINOPHEN\TRAMADOL
     Dosage: 1 DF, 3X/DAY (30MINS AFTER MEALS)
     Dates: start: 20190307, end: 20190313
  11. MAGMITT [Concomitant]
     Active Substance: MAGNESIUM OXIDE
     Dosage: 330 MG, 3X/DAY (30MINS AFTER MEALS)
     Dates: start: 20190318, end: 20190404
  12. LANSOPRAZOLE. [Concomitant]
     Active Substance: LANSOPRAZOLE
     Dosage: 1 DF, 1X/DAY (30 MINUTES AFTER BREAKFAST)
  13. BAYASPIRIN [Concomitant]
     Active Substance: ASPIRIN
     Dosage: 1 DF, 1X/DAY (30 MINUTES AFTER BREAKFAST)
  14. MAGMITT [Concomitant]
     Active Substance: MAGNESIUM OXIDE
     Dosage: 330 MG, 3X/DAY (30MINS AFTER MEALS)
     Dates: start: 20190307, end: 20190313
  15. VFEND [Suspect]
     Active Substance: VORICONAZOLE
     Dosage: 250 MG, DAILY (100MG AT 10:00, 150MG AT 22:00)
     Route: 048
     Dates: start: 20190404
  16. ARTIST [Concomitant]
     Active Substance: CARVEDILOL
     Dosage: 1.25MG (1 TABLET), 2X/DAY (30 MINUTES AFTER BREAKFAST/SUPPER)
  17. ALPHAGAN P [Concomitant]
     Active Substance: BRIMONIDINE TARTRATE
     Dosage: UNK UNK, 2X/DAY (RIGHT EYE)
     Route: 047
  18. XALATAN [Concomitant]
     Active Substance: LATANOPROST
     Dosage: UNK UNK, 1X/DAY (RIGHT EYE / BEFORE BED TIME)
     Route: 047
  19. VFEND [Suspect]
     Active Substance: VORICONAZOLE
     Dosage: 100 MG, 2X/DAY
     Route: 048
     Dates: start: 20190318, end: 20190327
  20. VFEND [Suspect]
     Active Substance: VORICONAZOLE
     Dosage: 150 MG, 2X/DAY
     Route: 048
     Dates: start: 20190327, end: 20190403
  21. ISOTONIC SODIUM CHLORIDE SOLUTION [Concomitant]
     Active Substance: SODIUM CHLORIDE
     Dosage: UNK
     Route: 041
     Dates: start: 20190314, end: 20190314
  22. VEEN D [Concomitant]
     Active Substance: CALCIUM CHLORIDE\DEXTROSE\POTASSIUM CHLORIDE\SODIUM ACETATE\SODIUM CHLORIDE
     Dosage: UNK
     Route: 041
     Dates: start: 20190314, end: 20190314
  23. FENTANYL. [Concomitant]
     Active Substance: FENTANYL
     Dosage: UNK
     Route: 041
     Dates: start: 20190314, end: 20190314

REACTIONS (9)
  - Hepatic function abnormal [Recovering/Resolving]
  - Blood creatine phosphokinase increased [Recovered/Resolved]
  - Gamma-glutamyltransferase increased [Recovering/Resolving]
  - Visual impairment [Unknown]
  - Malaise [Unknown]
  - Dizziness [Recovered/Resolved]
  - Photophobia [Recovering/Resolving]
  - Aspartate aminotransferase increased [Recovering/Resolving]
  - Drug level decreased [Recovered/Resolved]

NARRATIVE: CASE EVENT DATE: 20190316
